FAERS Safety Report 24879920 (Version 2)
Quarter: 2025Q1

REPORT INFORMATION
  Report Type: Spontaneous
  Country: DE (occurrence: DE)
  Receive Date: 20250123
  Receipt Date: 20250126
  Transmission Date: 20250409
  Serious: Yes (Death, Other)
  Sender: TORRENT PHARMA INC.
  Company Number: None

PATIENT
  Age: 81 Year
  Sex: Male

DRUGS (1)
  1. METFORMIN [Suspect]
     Active Substance: METFORMIN HYDROCHLORIDE
     Indication: Type 2 diabetes mellitus
     Dosage: INGESTION / INTAKE OVER THE YEARS
     Route: 048

REACTIONS (6)
  - Lactic acidosis [Fatal]
  - Hypotension [Fatal]
  - Cardiac arrest [Fatal]
  - Diarrhoea [Unknown]
  - Faecaloma [Unknown]
  - Dehydration [Unknown]

NARRATIVE: CASE EVENT DATE: 20250103
